FAERS Safety Report 7225732-1 (Version None)
Quarter: 2011Q1

REPORT INFORMATION
  Report Type: 
  Country: None (occurrence: None)
  Receive Date: 20110110
  Receipt Date: 20110110
  Transmission Date: 20110831
  Serious: No
  Sender: FDA-Public Use
  Company Number: None

PATIENT
  Sex: Male
  Weight: 83.9154 kg

DRUGS (1)
  1. RISPERDAL [Suspect]
     Indication: PARANOIA
     Dosage: 3 MG'S DAILY PO 10 TO 15 YEARS
     Route: 048

REACTIONS (1)
  - ILL-DEFINED DISORDER [None]
